FAERS Safety Report 4493037-8 (Version None)
Quarter: 2004Q4

REPORT INFORMATION
  Report Type: 
  Country: None (occurrence: None)
  Receive Date: 20041101
  Receipt Date: 20041027
  Transmission Date: 20050328
  Serious: Yes (Life-Threatening, Hospitalization, Other)
  Sender: FDA-Public Use
  Company Number: 2004240027NO

PATIENT
  Age: 29 Year
  Sex: Female

DRUGS (2)
  1. CALAN [Suspect]
     Dosage: 3.6 G
  2. SOTALOL NM (SOTALOL HYDROCHLORIDE) [Suspect]
     Dosage: 4.8 G

REACTIONS (12)
  - BLOOD PRESSURE IMMEASURABLE [None]
  - BRADYCARDIA [None]
  - CARDIAC ARREST [None]
  - CARDIOVASCULAR DISORDER [None]
  - DRUG TOXICITY [None]
  - GASTROINTESTINAL HAEMORRHAGE [None]
  - LOSS OF CONSCIOUSNESS [None]
  - MULTIPLE DRUG OVERDOSE [None]
  - MYDRIASIS [None]
  - PARALYSIS [None]
  - RENAL FAILURE [None]
  - RHABDOMYOLYSIS [None]
